FAERS Safety Report 5099187-X (Version None)
Quarter: 2006Q3

REPORT INFORMATION
  Report Type: 
  Country: None (occurrence: None)
  Receive Date: 20060728
  Receipt Date: 20060524
  Transmission Date: 20061208
  Serious: No
  Sender: FDA-Public Use
  Company Number: COT_0546_2006

PATIENT
  Age: 65 Year
  Sex: Female
  Weight: 81.1939 kg

DRUGS (10)
  1. VENTAVIS [Suspect]
     Indication: PULMONARY HYPERTENSION
     Dosage: 5 MCG 6XD IH
     Route: 055
     Dates: start: 20060511
  2. SILDENAFIL [Suspect]
     Dates: start: 20060501
  3. LOPRESSOR [Concomitant]
  4. CLONIDINE [Concomitant]
  5. LISINOPRIL [Concomitant]
  6. ASPIRIN [Concomitant]
  7. LIPITOR [Concomitant]
  8. EPOGEN [Concomitant]
  9. NOVOLIN N [Concomitant]
  10. NOVOLIN R [Concomitant]

REACTIONS (1)
  - PRURITUS GENERALISED [None]
